FAERS Safety Report 4447466-9 (Version None)
Quarter: 2004Q3

REPORT INFORMATION
  Report Type: 
  Country: None (occurrence: None)
  Receive Date: 20040823
  Receipt Date: 20040520
  Transmission Date: 20050211
  Serious: No
  Sender: FDA-Public Use
  Company Number: PHEH2004US04836

PATIENT
  Age: 64 Year
  Sex: Male

DRUGS (5)
  1. ZELNORM [Suspect]
     Indication: IRRITABLE BOWEL SYNDROME
     Dosage: 3 MG BID ORAL
     Route: 048
     Dates: start: 20040410
  2. TENORMIN [Concomitant]
  3. LOTENSIN [Concomitant]
  4. ATENOLOL [Concomitant]
  5. PREVACID [Concomitant]

REACTIONS (2)
  - LOCAL SWELLING [None]
  - PAIN IN EXTREMITY [None]
